FAERS Safety Report 6167583-5 (Version None)
Quarter: 2009Q2

REPORT INFORMATION
  Report Type: 
  Country: None (occurrence: None)
  Receive Date: 20090424
  Receipt Date: 20090417
  Transmission Date: 20091009
  Serious: Yes (Hospitalization)
  Sender: FDA-Public Use
  Company Number: RO-ABBOTT-09P-135-0568761-00

PATIENT
  Sex: Male

DRUGS (6)
  1. HUMIRA [Suspect]
     Indication: ANKYLOSING SPONDYLITIS
     Route: 058
     Dates: start: 20081201, end: 20090406
  2. HUMIRA [Suspect]
     Route: 058
     Dates: start: 20080601, end: 20081101
  3. MEDROL [Suspect]
     Indication: ANKYLOSING SPONDYLITIS
     Route: 048
     Dates: start: 20081201, end: 20090406
  4. MEDROL [Suspect]
     Dosage: 16-32 MG/DAY
     Dates: start: 20071101, end: 20080601
  5. SULFASALAZINE [Concomitant]
     Indication: ANKYLOSING SPONDYLITIS
     Route: 048
     Dates: start: 20081201, end: 20090401
  6. SULFASALAZINE [Concomitant]
     Route: 048
     Dates: start: 20070701, end: 20080601

REACTIONS (1)
  - DIARRHOEA HAEMORRHAGIC [None]
